FAERS Safety Report 23852140 (Version 1)
Quarter: 2024Q2

REPORT INFORMATION
  Report Type: Spontaneous
  Country: TR (occurrence: TR)
  Receive Date: 20240514
  Receipt Date: 20240514
  Transmission Date: 20240715
  Serious: Yes (Hospitalization)
  Sender: FDA-Public Use
  Company Number: TR-STERISCIENCE B.V.-2024-ST-000604

PATIENT
  Age: 70 Year
  Sex: Female

DRUGS (1)
  1. METOPROLOL [Suspect]
     Active Substance: METOPROLOL
     Indication: Supraventricular extrasystoles
     Dosage: 25 MILLIGRAM, QD
     Route: 065

REACTIONS (1)
  - Drug ineffective for unapproved indication [Unknown]
